FAERS Safety Report 5067273-6 (Version None)
Quarter: 2006Q3

REPORT INFORMATION
  Report Type: 
  Country: None (occurrence: None)
  Receive Date: 20060727
  Receipt Date: 20060717
  Transmission Date: 20061208
  Serious: Yes (Hospitalization, Other)
  Sender: FDA-Public Use
  Company Number: 226456

PATIENT
  Age: 40 Year
  Sex: Female

DRUGS (6)
  1. XOLAIR (OMALIZUMAB) PWFR + SOLVENT, INJECTION SOLN, 150MG [Suspect]
     Indication: ASTHMA
     Dosage: 150 MG, SINGLE, SUBCUTANEOUS
     Route: 058
     Dates: start: 20060528
  2. FORMOTEROL FUMARATE (FORMOTEROL FUMARATE) [Suspect]
     Indication: ASTHMA
     Dosage: OTHER
  3. BUDESONIDE [Suspect]
     Indication: ASTHMA
     Dosage: OTHER
  4. PREDNISOLONE [Concomitant]
  5. SALBUTAMOL SPRAY (ALBUTEROL/ALBUTEROL SULFATE_ [Concomitant]
  6. FLEBOCORTID (HYDROCORITSONE SODIU SUCCINATE) [Concomitant]

REACTIONS (7)
  - ASTHMA [None]
  - BRONCHOSPASM [None]
  - CONDITION AGGRAVATED [None]
  - DYSPNOEA [None]
  - HYPERAEMIA [None]
  - LARYNGEAL OEDEMA [None]
  - PRURITUS [None]
